FAERS Safety Report 14474355 (Version 1)
Quarter: 2018Q1

REPORT INFORMATION
  Report Type: Spontaneous
  Country: US (occurrence: US)
  Receive Date: 20180201
  Receipt Date: 20180201
  Transmission Date: 20180509
  Serious: No
  Sender: FDA-Public Use
  Company Number: US-ENDO PHARMACEUTICALS INC-2017-004348

PATIENT

DRUGS (2)
  1. BUPROPION HYDROCHLORIDE XL [Suspect]
     Active Substance: BUPROPION HYDROCHLORIDE
     Indication: PRODUCT USED FOR UNKNOWN INDICATION
     Dosage: UNK UNK, EVERY MORNING BETWEEN 6-8 AM WITH WATER
     Route: 065
  2. BUPROPION HYDROCHLORIDE XL [Suspect]
     Active Substance: BUPROPION HYDROCHLORIDE
     Dosage: 1 DF, BID (MORNING AND NIGHT)
     Route: 065

REACTIONS (6)
  - Anger [Unknown]
  - Drug ineffective [Unknown]
  - Feelings of worthlessness [Unknown]
  - Depression [Unknown]
  - Feeling abnormal [Unknown]
  - Crying [Unknown]
